FAERS Safety Report 22794542 (Version 8)
Quarter: 2023Q4

REPORT INFORMATION
  Report Type: Spontaneous
  Country: GB (occurrence: GB)
  Receive Date: 20230807
  Receipt Date: 20231227
  Transmission Date: 20240109
  Serious: Yes (Other)
  Sender: FDA-Public Use
  Company Number: GB-MYLANLABS-2023M1076810

PATIENT
  Age: 41 Year
  Sex: Female

DRUGS (6)
  1. FILGRASTIM [Suspect]
     Active Substance: FILGRASTIM
     Indication: Product used for unknown indication
     Dosage: UNK
     Route: 065
  2. CLOZARIL [Suspect]
     Active Substance: CLOZAPINE
     Indication: Product used for unknown indication
     Dosage: UNK
     Route: 048
     Dates: start: 20210114
  3. CLOZARIL [Suspect]
     Active Substance: CLOZAPINE
     Dosage: 150 MG, MANE (IN THE MORNING)
     Route: 065
  4. CLOZARIL [Suspect]
     Active Substance: CLOZAPINE
     Dosage: 275 MG, NOCTE (AT NIGHT)
     Route: 065
  5. VALPROATE SODIUM [Concomitant]
     Active Substance: VALPROATE SODIUM
     Indication: Product used for unknown indication
     Dosage: UNK
     Route: 065
  6. ARIPIPRAZOLE [Concomitant]
     Active Substance: ARIPIPRAZOLE
     Indication: Product used for unknown indication
     Dosage: UNK
     Route: 065

REACTIONS (9)
  - Neutrophilia [Recovered/Resolved]
  - Leukopenia [Recovered/Resolved]
  - Leukaemia [Unknown]
  - Leukocytosis [Recovered/Resolved]
  - Thrombocytopenia [Not Recovered/Not Resolved]
  - Eosinopenia [Not Recovered/Not Resolved]
  - Neutrophil count decreased [Recovered/Resolved]
  - Off label use [Unknown]
  - Haemoglobin decreased [Unknown]

NARRATIVE: CASE EVENT DATE: 20230717
